FAERS Safety Report 16382889 (Version 1)
Quarter: 2019Q2

REPORT INFORMATION
  Report Type: Spontaneous
  Country: US (occurrence: US)
  Receive Date: 20190506
  Receipt Date: 20190506
  Transmission Date: 20190711
  Serious: Yes (Disabling, Other)
  Sender: FDA-Public Use
  Company Number: None

PATIENT
  Age: 44 Year
  Sex: Female
  Weight: 54 kg

DRUGS (9)
  1. FENTANYL TRANSDERMAL PATCHES 75MGH PATCHES [Suspect]
     Active Substance: FENTANYL
     Indication: SHOULDER OPERATION
     Dosage: ?          QUANTITY:1 DROP(S);OTHER FREQUENCY:48H;?
     Route: 062
     Dates: start: 20060120, end: 20171015
  2. OXYCONTIN [Suspect]
     Active Substance: OXYCODONE HYDROCHLORIDE
     Indication: SHOULDER OPERATION
     Dosage: ?          QUANTITY:1 TABLET(S);?
     Route: 048
     Dates: start: 20070110, end: 20171015
  3. FLEXARIL [Concomitant]
  4. MAGNESIUM [Concomitant]
     Active Substance: MAGNESIUM
  5. POTASSIUM [Concomitant]
     Active Substance: POTASSIUM
  6. AMBIEN [Concomitant]
     Active Substance: ZOLPIDEM TARTRATE
  7. MORPHINE IR [Concomitant]
     Active Substance: MORPHINE
  8. MORPHINE ER [Concomitant]
     Active Substance: MORPHINE
  9. MULTIPLE VITAMINS [Concomitant]
     Active Substance: VITAMINS

REACTIONS (7)
  - Drug withdrawal syndrome [None]
  - Palpitations [None]
  - Stress [None]
  - Migraine [None]
  - Marital problem [None]
  - Hypertension [None]
  - Mood swings [None]

NARRATIVE: CASE EVENT DATE: 20171020
